FAERS Safety Report 7457091-3 (Version None)
Quarter: 2011Q1

REPORT INFORMATION
  Report Type: 
  Country: None (occurrence: None)
  Receive Date: 20110302
  Receipt Date: 20101213
  Transmission Date: 20110831
  Serious: No
  Sender: FDA-Public Use
  Company Number: 023764

PATIENT
  Sex: Female
  Weight: 126.4 kg

DRUGS (5)
  1. CIMZIA [Suspect]
     Indication: RHEUMATOID ARTHRITIS
     Dosage: (TWO SHOTS EVERY MONTH SUBCUTANEOUS)
     Route: 058
     Dates: start: 20101021
  2. RELAFEN [Concomitant]
  3. LEVOTHYROXINE SODIUM [Concomitant]
  4. PROZAC /00724401/ [Concomitant]
  5. METHOTREXATE [Concomitant]

REACTIONS (2)
  - PAIN IN EXTREMITY [None]
  - OEDEMA PERIPHERAL [None]
